FAERS Safety Report 9738142 (Version 1)
Quarter: 2013Q4

REPORT INFORMATION
  Report Type: Spontaneous
  Country: US (occurrence: US)
  Receive Date: 20131208
  Receipt Date: 20131208
  Transmission Date: 20140711
  Serious: No
  Sender: FDA-Public Use
  Company Number: -SAAVPROD-RENA-1001718

PATIENT
  Age: 55 Year
  Sex: Male

DRUGS (2)
  1. SEVELAMER CARBONATE [Suspect]
     Indication: HYPERPHOSPHATAEMIA
     Dosage: 2.4 G, (4-6 TIMES PER DAY)
     Route: 065
     Dates: start: 201208
  2. CALCIUM CARBONATE, MAGNESIUM CARBONATE, MAGNESIUM TRISILICATE [Concomitant]
     Indication: PRODUCT USED FOR UNKNOWN INDICATION
     Dosage: UNK; LARGE QUANTITY WITH MEALS
     Route: 065

REACTIONS (1)
  - Hyperphosphataemia [Not Recovered/Not Resolved]
